FAERS Safety Report 7760135-2 (Version None)
Quarter: 2011Q3

REPORT INFORMATION
  Report Type: 
  Country: None (occurrence: None)
  Receive Date: 20110919
  Receipt Date: 20110914
  Transmission Date: 20111222
  Serious: Yes (Other)
  Sender: FDA-Public Use
  Company Number: US-TEVA-300826USA

PATIENT
  Sex: Male

DRUGS (2)
  1. INDOMETACIN [Suspect]
     Indication: GOUT
  2. INDOMETACIN [Suspect]
     Indication: CALCINOSIS
     Dosage: 150 MILLIGRAM;
     Route: 048
     Dates: start: 20110902, end: 20110910

REACTIONS (11)
  - HEART RATE INCREASED [None]
  - LOSS OF CONSCIOUSNESS [None]
  - LIGAMENT SPRAIN [None]
  - PAIN IN EXTREMITY [None]
  - CHILLS [None]
  - DYSSTASIA [None]
  - VISUAL IMPAIRMENT [None]
  - HYPOTHERMIA [None]
  - FRACTURE [None]
  - TENDON INJURY [None]
  - SPEECH DISORDER [None]
